FAERS Safety Report 22094165 (Version 3)
Quarter: 2023Q1

REPORT INFORMATION
  Report Type: Report from Study
  Country: TW (occurrence: TW)
  Receive Date: 20230314
  Receipt Date: 20230324
  Transmission Date: 20230417
  Serious: Yes (Death, Hospitalization, Other)
  Sender: FDA-Public Use
  Company Number: TW-GILEAD-2023-0619811

PATIENT
  Age: 69 Year
  Sex: Male
  Weight: 45.7 kg

DRUGS (8)
  1. SOFOSBUVIR\VELPATASVIR [Suspect]
     Active Substance: SOFOSBUVIR\VELPATASVIR
     Indication: Hepatitis C
     Dosage: 1 DOSAGE FORM, QD
     Route: 048
     Dates: start: 20190620, end: 20190903
  2. REPAGLINIDE [Concomitant]
     Active Substance: REPAGLINIDE
     Indication: Diabetes mellitus
  3. NORVASC [Concomitant]
     Active Substance: AMLODIPINE BESYLATE
     Indication: Hypertension
  4. BISOPROLOL FUMARATE [Concomitant]
     Active Substance: BISOPROLOL FUMARATE
     Indication: Hypertension
  5. IBIMO [Concomitant]
     Indication: Hypertension
  6. MACALOL [Concomitant]
     Indication: Vitamin D deficiency
  7. ALUGEL [ALGELDRATE] [Concomitant]
     Indication: Gastritis prophylaxis
  8. GASTER [CROMOGLICATE SODIUM] [Concomitant]
     Indication: Gastritis prophylaxis

REACTIONS (1)
  - Septic shock [Fatal]

NARRATIVE: CASE EVENT DATE: 20200804
